FAERS Safety Report 4588218-9 (Version None)
Quarter: 2005Q1

REPORT INFORMATION
  Report Type: 
  Country: None (occurrence: None)
  Receive Date: 20050221
  Receipt Date: 20050118
  Transmission Date: 20050727
  Serious: Yes (Other)
  Sender: FDA-Public Use
  Company Number: JP-ROCHE-392621

PATIENT
  Age: 32 Year
  Sex: Male

DRUGS (2)
  1. HORIZON [Suspect]
     Indication: ANAESTHETIC PREMEDICATION
     Dosage: INJECTION SITE WAS AT THE CUBITAL FOSSA OF THE ELBOW JOINT.
     Route: 042
     Dates: start: 20041125, end: 20041125
  2. BUSCOPAN [Concomitant]
     Route: 042
     Dates: start: 20041125, end: 20041125

REACTIONS (2)
  - ARTERITIS [None]
  - THROMBOPHLEBITIS [None]
